FAERS Safety Report 6167646-4 (Version None)
Quarter: 2009Q2

REPORT INFORMATION
  Report Type: 
  Country: None (occurrence: None)
  Receive Date: 20090424
  Receipt Date: 20090415
  Transmission Date: 20091009
  Serious: Yes (Hospitalization, Other)
  Sender: FDA-Public Use
  Company Number: PHHY2009BR07882

PATIENT
  Sex: Female

DRUGS (1)
  1. DIOVAN HCT [Suspect]
     Indication: HYPERTENSION
     Dosage: ONE TABLET IN THE MORNING
     Route: 048
     Dates: start: 20080101

REACTIONS (8)
  - ANGINA PECTORIS [None]
  - ANGIOPATHY [None]
  - BLOOD PRESSURE DECREASED [None]
  - CATHETERISATION VENOUS [None]
  - CHEST PAIN [None]
  - FATIGUE [None]
  - INFARCTION [None]
  - SURGERY [None]
